FAERS Safety Report 21655273 (Version 1)
Quarter: 2022Q4

REPORT INFORMATION
  Report Type: Report from Study
  Country: US (occurrence: US)
  Receive Date: 20221129
  Receipt Date: 20221129
  Transmission Date: 20230113
  Serious: No
  Sender: FDA-Public Use
  Company Number: US-ABBVIE-4184529

PATIENT
  Sex: Female

DRUGS (1)
  1. HUMIRA [Suspect]
     Active Substance: ADALIMUMAB
     Indication: Ankylosing spondylitis
     Dosage: ONCE A WEEK
     Route: 058

REACTIONS (4)
  - Rash [Not Recovered/Not Resolved]
  - Infertility [Not Recovered/Not Resolved]
  - Arthralgia [Unknown]
  - Back pain [Unknown]
